FAERS Safety Report 8480173-4 (Version None)
Quarter: 2012Q2

REPORT INFORMATION
  Report Type: 
  Country: None (occurrence: None)
  Receive Date: 20120629
  Receipt Date: 20120622
  Transmission Date: 20120825
  Serious: Yes (Hospitalization, Disabling)
  Sender: FDA-Public Use
  Company Number: US-MERCK-1203USA03305

PATIENT
  Age: 73 Year
  Sex: Female

DRUGS (8)
  1. FOSAMAX [Suspect]
     Indication: OSTEOPOROSIS
     Route: 048
     Dates: start: 19990913, end: 20080601
  2. FOSAMAX [Suspect]
     Route: 048
     Dates: start: 20080601
  3. FOSAMAX [Suspect]
     Route: 048
     Dates: start: 20080601
  4. FOSAMAX [Suspect]
     Route: 048
     Dates: start: 20040220, end: 20100101
  5. OMEGA-3 MARINE TRIGLYCERIDES [Concomitant]
     Route: 065
  6. FOSAMAX [Suspect]
     Indication: OSTEOPENIA
     Route: 048
     Dates: start: 19990913, end: 20080601
  7. FOSAMAX [Suspect]
     Route: 048
     Dates: start: 20040220, end: 20100101
  8. VITAMINS (UNSPECIFIED) [Concomitant]
     Route: 065

REACTIONS (14)
  - BACK PAIN [None]
  - ARTHRITIS [None]
  - LIPOMA [None]
  - EYE DISORDER [None]
  - HYPERTENSION [None]
  - BLOOD CHOLESTEROL INCREASED [None]
  - LOW TURNOVER OSTEOPATHY [None]
  - CATARACT [None]
  - SPINAL COLUMN STENOSIS [None]
  - SACROILIITIS [None]
  - FOOT DEFORMITY [None]
  - FEMUR FRACTURE [None]
  - OSTEOPENIA [None]
  - CYSTITIS [None]
